FAERS Safety Report 4983705-3 (Version None)
Quarter: 2006Q2

REPORT INFORMATION
  Report Type: 
  Country: None (occurrence: None)
  Receive Date: 20060425
  Receipt Date: 20060425
  Transmission Date: 20061013
  Serious: Yes (Death)
  Sender: FDA-Public Use
  Company Number: None

PATIENT
  Sex: Male
  Weight: 72.5755 kg

DRUGS (2)
  1. FLUDARABINE [Suspect]
     Indication: MALIGNANT MELANOMA
     Dosage: 3MG/DAY/IV X 5 DAYS
     Route: 042
     Dates: start: 20050404, end: 20050408
  2. GP-100 MELANOMA PEPTIDE (MONTANIDE ISA 51 + KLH) [Suspect]
     Indication: MALIGNANT MELANOMA
     Dosage: 2ML/SQ/EVERY 2 WEEKS
     Route: 058
     Dates: start: 20050411, end: 20050606

REACTIONS (3)
  - COMPLETED SUICIDE [None]
  - DISEASE PROGRESSION [None]
  - GUN SHOT WOUND [None]
